FAERS Safety Report 8489289-X (Version None)
Quarter: 2012Q2

REPORT INFORMATION
  Report Type: 
  Country: None (occurrence: None)
  Receive Date: 20120628
  Receipt Date: 20120628
  Transmission Date: 20120825
  Serious: No
  Sender: FDA-Public Use
  Company Number: None

PATIENT
  Age: 66 Year
  Sex: Male
  Weight: 93.2 kg

DRUGS (1)
  1. BOCEPREVIR [Suspect]
     Indication: HEPATITIS C
     Dosage: MG PO
     Route: 048
     Dates: start: 20120110

REACTIONS (1)
  - RASH [None]
